FAERS Safety Report 9009507 (Version 1)
Quarter: 2013Q1

REPORT INFORMATION
  Report Type: Spontaneous
  Country: CA (occurrence: CA)
  Receive Date: 20130110
  Receipt Date: 20130110
  Transmission Date: 20140127
  Serious: Yes (Other)
  Sender: FDA-Public Use
  Company Number: CA-GLAXOSMITHKLINE-A1007562A

PATIENT
  Sex: Female

DRUGS (2)
  1. ADVAIR [Suspect]
     Indication: CHRONIC OBSTRUCTIVE PULMONARY DISEASE
     Route: 055
  2. FLOVENT [Suspect]
     Indication: CHRONIC OBSTRUCTIVE PULMONARY DISEASE
     Route: 055
     Dates: start: 20121227, end: 20130104

REACTIONS (6)
  - Nasopharyngitis [Unknown]
  - Pneumonia [Not Recovered/Not Resolved]
  - Dysgeusia [Unknown]
  - Glossodynia [Unknown]
  - Tongue discolouration [Unknown]
  - Oral candidiasis [Unknown]
